FAERS Safety Report 15948966 (Version 1)
Quarter: 2019Q1

REPORT INFORMATION
  Report Type: Spontaneous
  Country: BR (occurrence: BR)
  Receive Date: 20190211
  Receipt Date: 20190211
  Transmission Date: 20190417
  Serious: Yes (Life-Threatening, Other)
  Sender: FDA-Public Use
  Company Number: PHHY2019BR031392

PATIENT
  Age: 58 Year
  Sex: Female
  Weight: 61 kg

DRUGS (9)
  1. SERTRALINE [Suspect]
     Active Substance: SERTRALINE HYDROCHLORIDE
     Indication: DEPRESSION
  2. ZOLPIDEM HEMITARTRATE [Suspect]
     Active Substance: ZOLPIDEM\ZOLPIDEM TARTRATE
     Indication: PANIC DISORDER
  3. SERTRALINE [Suspect]
     Active Substance: SERTRALINE HYDROCHLORIDE
     Indication: ANXIETY
     Dosage: 1 DF, QD
     Route: 065
  4. ZOLPIDEM HEMITARTRATE [Suspect]
     Active Substance: ZOLPIDEM\ZOLPIDEM TARTRATE
     Indication: TREMOR
  5. SERTRALINE [Suspect]
     Active Substance: SERTRALINE HYDROCHLORIDE
     Indication: PANIC DISORDER
  6. SERTRALINE [Suspect]
     Active Substance: SERTRALINE HYDROCHLORIDE
     Indication: INSOMNIA
  7. ZOLPIDEM HEMITARTRATE [Suspect]
     Active Substance: ZOLPIDEM\ZOLPIDEM TARTRATE
     Indication: ANXIETY
  8. ZOLPIDEM HEMITARTRATE [Suspect]
     Active Substance: ZOLPIDEM\ZOLPIDEM TARTRATE
     Indication: INSOMNIA
     Dosage: 0.5 DF, QD  (EVENING)
     Route: 048
     Dates: start: 20190206, end: 20190206
  9. ZOLPIDEM HEMITARTRATE [Suspect]
     Active Substance: ZOLPIDEM\ZOLPIDEM TARTRATE
     Indication: DEPRESSION

REACTIONS (13)
  - Loss of consciousness [Unknown]
  - Dizziness [Not Recovered/Not Resolved]
  - Limb discomfort [Unknown]
  - Malaise [Not Recovered/Not Resolved]
  - Tongue disorder [Unknown]
  - Memory impairment [Unknown]
  - Gait inability [Unknown]
  - Apparent death [Unknown]
  - Vertigo [Unknown]
  - Fall [Unknown]
  - Retching [Unknown]
  - Vomiting [Unknown]
  - Speech disorder [Unknown]

NARRATIVE: CASE EVENT DATE: 20190206
